FAERS Safety Report 20533182 (Version 2)
Quarter: 2022Q1

REPORT INFORMATION
  Report Type: Spontaneous
  Country: MX (occurrence: MX)
  Receive Date: 20220301
  Receipt Date: 20220329
  Transmission Date: 20220423
  Serious: Yes (Other)
  Sender: FDA-Public Use
  Company Number: MX-LUPIN PHARMACEUTICALS INC.-2022-02771

PATIENT
  Age: 20 Year
  Sex: Female

DRUGS (3)
  1. BETAMETHASONE [Suspect]
     Active Substance: BETAMETHASONE
     Indication: Maternal therapy to enhance foetal lung maturity
     Dosage: 12 MG
     Route: 030
  2. NPH INSULIN [Suspect]
     Active Substance: INSULIN BEEF
     Indication: Gestational diabetes
     Dosage: 20 INTERNATIONAL UNIT, BID
     Route: 065
  3. DEXTROSE [Suspect]
     Active Substance: DEXTROSE
     Indication: Glucose tolerance test
     Dosage: 75 GRAM
     Route: 048

REACTIONS (3)
  - Hypoglycaemia [Unknown]
  - Premature delivery [Unknown]
  - Exposure during pregnancy [Unknown]
